FAERS Safety Report 11400592 (Version 1)
Quarter: 2015Q3

REPORT INFORMATION
  Report Type: Spontaneous
  Country: US (occurrence: US)
  Receive Date: 20150820
  Receipt Date: 20150820
  Transmission Date: 20151125
  Serious: Yes (Death)
  Sender: FDA-Public Use
  Company Number: US-PFIZER INC-2015269070

PATIENT
  Age: 71 Year
  Sex: Female

DRUGS (4)
  1. PLAVIX [Concomitant]
     Active Substance: CLOPIDOGREL BISULFATE
     Dosage: 75 MG, 1X/DAY
  2. TOPROL XL [Concomitant]
     Active Substance: METOPROLOL SUCCINATE
     Dosage: 200 MG, 1X/DAY
  3. CADUET [Suspect]
     Active Substance: AMLODIPINE BESYLATE\ATORVASTATIN CALCIUM
     Indication: HYPERTENSION
     Dosage: 1 DF, SINGLE (10/40 MG TABLET ONCE)
     Route: 048
     Dates: start: 20150518
  4. CADUET [Suspect]
     Active Substance: AMLODIPINE BESYLATE\ATORVASTATIN CALCIUM
     Indication: HYPERLIPIDAEMIA

REACTIONS (1)
  - Death [Fatal]

NARRATIVE: CASE EVENT DATE: 20150518
